FAERS Safety Report 7632108-1 (Version None)
Quarter: 2011Q3

REPORT INFORMATION
  Report Type: 
  Country: None (occurrence: None)
  Receive Date: 20110725
  Receipt Date: 20110725
  Transmission Date: 20111222
  Serious: Yes (Other)
  Sender: FDA-Public Use
  Company Number: None

PATIENT
  Age: 60 Year
  Sex: Female
  Weight: 63.502 kg

DRUGS (1)
  1. FORTEO [Suspect]
     Indication: OSTEOPOROSIS
     Route: 023
     Dates: start: 20110201, end: 20110722

REACTIONS (4)
  - MYALGIA [None]
  - ARTHRALGIA [None]
  - DYSSTASIA [None]
  - PAIN IN EXTREMITY [None]
